FAERS Safety Report 6123232-3 (Version None)
Quarter: 2009Q1

REPORT INFORMATION
  Report Type: 
  Country: None (occurrence: None)
  Receive Date: 20090318
  Receipt Date: 20090306
  Transmission Date: 20090719
  Serious: Yes (Other)
  Sender: FDA-Public Use
  Company Number: CH-JNJFOC-20090303817

PATIENT
  Weight: 2.04 kg

DRUGS (5)
  1. ZALDIAR [Suspect]
     Indication: DRUG EXPOSURE DURING PREGNANCY
  2. PONSTAN [Suspect]
     Indication: DRUG EXPOSURE DURING PREGNANCY
     Route: 064
  3. NORVIR [Suspect]
     Indication: DRUG EXPOSURE DURING PREGNANCY
     Route: 064
  4. TRIZIVIR [Suspect]
     Indication: DRUG EXPOSURE DURING PREGNANCY
     Route: 064
  5. REYATAZ [Suspect]
     Indication: DRUG EXPOSURE DURING PREGNANCY

REACTIONS (7)
  - CAESAREAN SECTION [None]
  - FEEDING DISORDER NEONATAL [None]
  - FOETAL GROWTH RETARDATION [None]
  - MATERNAL DRUGS AFFECTING FOETUS [None]
  - NEONATAL HYPOTENSION [None]
  - POOR WEIGHT GAIN NEONATAL [None]
  - SMALL FOR DATES BABY [None]
